FAERS Safety Report 6848601-5 (Version None)
Quarter: 2010Q3

REPORT INFORMATION
  Report Type: 
  Country: None (occurrence: None)
  Receive Date: 20100716
  Receipt Date: 20100707
  Transmission Date: 20110219
  Serious: Yes (Other)
  Sender: FDA-Public Use
  Company Number: US-JNJFOC-20100601573

PATIENT
  Sex: Female
  Weight: 132 kg

DRUGS (2)
  1. STELARA [Suspect]
     Indication: PSORIASIS
     Dosage: TWO DOSES ON UNSPECIFIED DATES
     Route: 058
  2. STELARA [Suspect]
     Dosage: TWO DOSES ON UNSPECIFIED DATES
     Route: 058

REACTIONS (2)
  - FALL [None]
  - IMPAIRED HEALING [None]
